FAERS Safety Report 5796694-9 (Version None)
Quarter: 2008Q2

REPORT INFORMATION
  Report Type: 
  Country: None (occurrence: None)
  Receive Date: 20080630
  Receipt Date: 20080630
  Transmission Date: 20081010
  Serious: Yes (Other)
  Sender: FDA-Public Use
  Company Number: None

PATIENT
  Age: 34 Year
  Sex: Female
  Weight: 81.1939 kg

DRUGS (1)
  1. YAZ [Suspect]
     Indication: ACNE
     Dosage: ONE PILL DAILY PO
     Route: 048
     Dates: start: 20080619, end: 20080627

REACTIONS (5)
  - MOOD SWINGS [None]
  - PAIN [None]
  - PALPITATIONS [None]
  - PRURITUS [None]
  - RASH GENERALISED [None]
